FAERS Safety Report 7811123-9 (Version None)
Quarter: 2011Q4

REPORT INFORMATION
  Report Type: 
  Country: None (occurrence: None)
  Receive Date: 20111013
  Receipt Date: 20111003
  Transmission Date: 20120403
  Serious: No
  Sender: FDA-Public Use
  Company Number: PHFR2011GB05697

PATIENT
  Sex: Female

DRUGS (2)
  1. DASATINIB [Concomitant]
  2. TASIGNA [Suspect]
     Dosage: 400 DF, BID
     Dates: start: 20110901

REACTIONS (3)
  - DIZZINESS [None]
  - NAUSEA [None]
  - VOMITING [None]
